FAERS Safety Report 18701988 (Version 1)
Quarter: 2021Q1

REPORT INFORMATION
  Report Type: Spontaneous
  Country: DK (occurrence: DK)
  Receive Date: 20210105
  Receipt Date: 20210105
  Transmission Date: 20210419
  Serious: Yes (Hospitalization)
  Sender: FDA-Public Use
  Company Number: DK-009507513-2101DNK000707

PATIENT
  Sex: Female
  Weight: 86 kg

DRUGS (5)
  1. PANODIL [Concomitant]
     Active Substance: ACETAMINOPHEN
     Indication: PAIN
     Dosage: UNK
  2. BONVIVA [Suspect]
     Active Substance: IBANDRONATE SODIUM
     Indication: OSTEOPOROSIS
     Dosage: STRENGTH: 150 MG DOSE UNKNOWN
     Route: 048
     Dates: end: 2017
  3. ALENDRONATE SODIUM. [Suspect]
     Active Substance: ALENDRONATE SODIUM
     Indication: OSTEOPOROSIS
     Dosage: STRENGTH: UNKNOWN DOSAGE: UNKNOWN
     Route: 048
     Dates: end: 2017
  4. CALCIUM (UNSPECIFIED) (+) VITAMIN D (UNSPECIFIED) [Concomitant]
     Active Substance: CALCIUM CARBONATE\VITAMIN D
     Indication: VITAMIN SUPPLEMENTATION
     Dosage: UNK
  5. SAROTEN [Concomitant]
     Active Substance: AMITRIPTYLINE
     Indication: PAIN
     Dosage: UNK
     Dates: start: 20150629

REACTIONS (4)
  - Atypical femur fracture [Not Recovered/Not Resolved]
  - Ankle fracture [Unknown]
  - Ulna fracture [Unknown]
  - Radius fracture [Unknown]

NARRATIVE: CASE EVENT DATE: 201811
